FAERS Safety Report 19984402 (Version 1)
Quarter: 2021Q4

REPORT INFORMATION
  Report Type: Spontaneous
  Country: FR (occurrence: FR)
  Receive Date: 20211021
  Receipt Date: 20211021
  Transmission Date: 20220303
  Serious: Yes (Other)
  Sender: FDA-Public Use
  Company Number: FR-TEVA-2021-FR-1959004

PATIENT
  Age: 88 Year
  Sex: Female

DRUGS (3)
  1. LATANOPROST [Suspect]
     Active Substance: LATANOPROST
     Indication: Eye disorder
     Dosage: UNK
  2. OXYBUTYNIN [Suspect]
     Active Substance: OXYBUTYNIN
     Indication: Urinary tract disorder
     Dosage: 5 MG, ONE OR TWO DOSAGE FORMS PER DAY
  3. HERBALS\HOMEOPATHICS\PASSIFLORA INCARNATA FLOWER [Concomitant]
     Active Substance: HERBALS\HOMEOPATHICS\PASSIFLORA INCARNATA FLOWER
     Indication: Nervousness
     Dosage: UNK

REACTIONS (7)
  - Loss of consciousness [Unknown]
  - Ear disorder [Unknown]
  - Vertigo [Unknown]
  - Malaise [Unknown]
  - Fall [Unknown]
  - Syncope [Unknown]
  - Inner ear disorder [Unknown]
